FAERS Safety Report 6943401-X (Version None)
Quarter: 2010Q3

REPORT INFORMATION
  Report Type: 
  Country: None (occurrence: None)
  Receive Date: 20100826
  Receipt Date: 20100823
  Transmission Date: 20110219
  Serious: Yes (Death, Life-Threatening, Other)
  Sender: FDA-Public Use
  Company Number: US-ROXANE LABORATORIES, INC.-2010-RO-01119RO

PATIENT
  Age: 71 Year
  Sex: Female
  Weight: 50 kg

DRUGS (6)
  1. AMLODIPINE [Suspect]
     Route: 048
  2. CALCIUM GLUCONATE [Suspect]
  3. INTRALIPID 20% [Suspect]
     Indication: DRUG TOXICITY
     Route: 051
  4. PHENYLEPHRINE HCL [Suspect]
  5. VASOPRESSIN [Suspect]
  6. HYPERINSULINEMIA-EUGLYCEMIA THERAPY [Suspect]
     Route: 042

REACTIONS (12)
  - ACIDOSIS [None]
  - ANAEMIA [None]
  - DEATH [None]
  - DRUG TOXICITY [None]
  - HYPERLIPIDAEMIA [None]
  - HYPONATRAEMIA [None]
  - HYPOTENSION [None]
  - INCORRECT DRUG ADMINISTRATION DURATION [None]
  - MENTAL STATUS CHANGES [None]
  - MULTI-ORGAN DISORDER [None]
  - PULMONARY OEDEMA [None]
  - URINE OUTPUT DECREASED [None]
